FAERS Safety Report 6993859-5 (Version None)
Quarter: 2010Q3

REPORT INFORMATION
  Report Type: 
  Country: None (occurrence: None)
  Receive Date: 20100917
  Receipt Date: 20070817
  Transmission Date: 20110219
  Serious: No
  Sender: FDA-Public Use
  Company Number: US-ASTRAZENECA-2007UW07539

PATIENT
  Age: 38 Year
  Sex: Male
  Weight: 80.7 kg

DRUGS (34)
  1. SEROQUEL [Suspect]
     Indication: SCHIZOPHRENIA
     Dosage: 100 - 800 MG
     Route: 048
     Dates: start: 19980101
  2. SEROQUEL [Suspect]
     Indication: BIPOLAR DISORDER
     Dosage: 100 - 800 MG
     Route: 048
     Dates: start: 19980101
  3. SEROQUEL [Suspect]
     Dosage: STRENGTH- 50 MG -600 MG    DOSE- 150 MG - 1000 MG
     Route: 048
     Dates: start: 20010625
  4. SEROQUEL [Suspect]
     Dosage: STRENGTH- 50 MG -600 MG    DOSE- 150 MG - 1000 MG
     Route: 048
     Dates: start: 20010625
  5. ABILIFY [Concomitant]
     Dates: start: 19920101, end: 20070101
  6. GEODON [Concomitant]
     Dates: start: 19920101, end: 20070101
  7. HALDOL [Concomitant]
     Dates: start: 19920101, end: 20070101
  8. NAVANE [Concomitant]
     Dates: start: 19920101, end: 20070101
  9. RISPERDAL [Concomitant]
     Dates: start: 19920101, end: 20070101
  10. RISPERDAL [Concomitant]
     Dates: start: 20040101
  11. STELAZINE [Concomitant]
     Dates: start: 19920101, end: 20070101
  12. THORAZINE [Concomitant]
     Dates: start: 19920101, end: 20070101
  13. ZYPREXA [Concomitant]
     Dates: start: 19920101, end: 20070101
  14. ZYPREXA [Concomitant]
     Dates: start: 19980101
  15. CLONAZEPAM [Concomitant]
     Route: 048
     Dates: start: 19980101
  16. SUMATRIPTAN SUCCINATE [Concomitant]
     Indication: HEADACHE
     Route: 048
     Dates: start: 20010101
  17. PROPRANOLOL HYDROCHLORIDE [Concomitant]
     Route: 048
     Dates: start: 20010101
  18. CHLORPROMAZINE HCL [Concomitant]
     Route: 048
     Dates: start: 20010101
  19. ACETAMINOPHEN [Concomitant]
     Indication: PAIN
     Dosage: 500 - 1000 MG EVERY 8 HR AND 650 MG EVERY 4 HR
     Route: 048
     Dates: start: 20010101
  20. CITALOPRAM HYDROBROMIDE [Concomitant]
     Dosage: STRENGTH- 30 MG, 40 MG.  DOSE- 30 MG - 40 MG DAILY
     Route: 048
     Dates: start: 20010101
  21. DIPHENHYDRAMINE HYDROCHLORIDE [Concomitant]
     Indication: ANXIETY
     Dosage: STRENGTH- 25 MG  DOSE - 75 MG - 150 MG
     Route: 048
     Dates: start: 20010101
  22. DIPHENHYDRAMINE HYDROCHLORIDE [Concomitant]
     Indication: EXTRAPYRAMIDAL DISORDER
     Dosage: STRENGTH- 25 MG  DOSE - 75 MG - 150 MG
     Route: 048
     Dates: start: 20010101
  23. HYDROXYZINE HYDROCHLORIDE [Concomitant]
     Indication: ANXIETY
     Dosage: 25 MG - 50 MG FOUR TIMES A DAY
     Dates: start: 19950101
  24. RANITIDINE HYDROCHLORIDE [Concomitant]
     Route: 048
     Dates: start: 20010101
  25. BENZTROPINE MESYLATE [Concomitant]
     Indication: TREMOR
     Dates: start: 20010101
  26. LORAZEPAM [Concomitant]
     Indication: AGITATION
     Dosage: 1 -2 MG PO Q6H
     Route: 048
     Dates: start: 20010101
  27. XOPENEX [Concomitant]
     Dates: start: 20060101
  28. DICYCLOMINE [Concomitant]
     Indication: ABDOMINAL PAIN
     Route: 048
     Dates: start: 20060101
  29. DIVALPROEX SODIUM [Concomitant]
     Route: 048
     Dates: start: 20060101
  30. BISACODYL [Concomitant]
     Route: 048
     Dates: start: 20060101
  31. ZOCOR [Concomitant]
     Dates: start: 20040324
  32. LISINOPRIL [Concomitant]
     Dates: start: 20040324
  33. PHENERGAN [Concomitant]
     Indication: NAUSEA
     Dates: start: 20060101
  34. TORADOL [Concomitant]
     Indication: ABDOMINAL PAIN
     Dates: start: 20060101

REACTIONS (6)
  - BLOOD CHOLESTEROL INCREASED [None]
  - DIABETES MELLITUS [None]
  - HYPERGLYCAEMIA [None]
  - OBESITY [None]
  - TYPE 2 DIABETES MELLITUS [None]
  - VISUAL ACUITY REDUCED [None]
